FAERS Safety Report 7465767 (Version 24)
Quarter: 2013Q4

REPORT INFORMATION
  Report Type: Spontaneous
  Country: US (occurrence: US)
  Receive Date: 20100712
  Receipt Date: 20131224
  Transmission Date: 20140711
  Serious: Yes (Death, Other)
  Sender: FDA-Public Use
  Company Number: PHEH2010US03494

PATIENT
  Age: 62 Year
  Sex: Male

DRUGS (37)
  1. ZOMETA [Suspect]
     Indication: PROSTATE CANCER
     Dosage: 4 MG, MONTHLY
     Route: 065
     Dates: start: 200603, end: 200903
  2. ZOMETA [Suspect]
     Indication: OSTEOPOROSIS
  3. LUPRON [Suspect]
  4. TRELSTAR [Concomitant]
  5. NEULASTA [Concomitant]
     Dosage: 6 MG
     Route: 058
  6. ALOXI [Concomitant]
     Dosage: 0.25 MG,
  7. TAXOTERE [Concomitant]
     Dosage: 140 MG,
  8. PREDNISONE [Concomitant]
  9. DICLOFENAC [Concomitant]
  10. METOPROLOL [Concomitant]
  11. SIMVASTATIN [Concomitant]
  12. PEPCID [Concomitant]
  13. LUNESTA [Concomitant]
  14. ASPIRIN ^BAYER^ [Concomitant]
  15. PERIDEX [Concomitant]
  16. PERCOCET [Concomitant]
  17. PEN-VEE-K [Concomitant]
  18. DARVOCET-N [Concomitant]
  19. AMOXICILLIN [Concomitant]
  20. WARFARIN [Concomitant]
  21. DOLASETRON [Concomitant]
  22. FOLTX [Concomitant]
  23. TORADOL [Concomitant]
  24. LIPITOR                                 /NET/ [Concomitant]
  25. FLEXERIL [Concomitant]
  26. CHEMOTHERAPEUTICS [Concomitant]
  27. RADIATION THERAPY [Concomitant]
  28. LOPRESSOR [Concomitant]
     Dosage: 25 MG, QD
  29. MEGESTROL [Concomitant]
     Dosage: 20 MG, QD
  30. OXYCONTIN [Concomitant]
     Dosage: 10 MG, BID
  31. CASODEX [Concomitant]
     Dosage: 50 MG, QD
  32. CABAZITAXEL [Concomitant]
  33. ZYTIGA [Concomitant]
     Dosage: 1000 MG, QD
  34. ESTRAMUSTINE [Concomitant]
  35. PROCRIT//EPOETIN ALFA [Concomitant]
     Dosage: 40000 U, QW
     Dates: start: 20120724
  36. PROVENGE [Concomitant]
  37. SUTENT [Concomitant]

REACTIONS (121)
  - Death [Fatal]
  - Osteonecrosis of jaw [Recovered/Resolved]
  - Disability [Unknown]
  - Anxiety [Unknown]
  - Injury [Unknown]
  - Anhedonia [Unknown]
  - Pulmonary embolism [Recovered/Resolved]
  - Lymphadenopathy mediastinal [Unknown]
  - Hilar lymphadenopathy [Unknown]
  - Back pain [Unknown]
  - Paraesthesia [Unknown]
  - Osteoarthritis [Unknown]
  - Oedema peripheral [Unknown]
  - Pain in extremity [Unknown]
  - Aortic arteriosclerosis [Unknown]
  - Pathological fracture [Unknown]
  - Rotator cuff syndrome [Unknown]
  - Intervertebral disc degeneration [Unknown]
  - Intervertebral disc protrusion [Unknown]
  - Musculoskeletal pain [Not Recovered/Not Resolved]
  - Chest pain [Unknown]
  - Dyspnoea [Unknown]
  - Myocardial infarction [Unknown]
  - Erectile dysfunction [Unknown]
  - Skin cancer [Unknown]
  - Second primary malignancy [Unknown]
  - Neutropenia [Unknown]
  - Haemorrhoids [Unknown]
  - Anaemia [Unknown]
  - Mitral valve incompetence [Unknown]
  - Left atrial dilatation [Unknown]
  - Tricuspid valve incompetence [Unknown]
  - Actinic keratosis [Unknown]
  - Hypercholesterolaemia [Unknown]
  - Varicose vein [Unknown]
  - Subcutaneous haematoma [Unknown]
  - Hyperhomocysteinaemia [Unknown]
  - Spinal column stenosis [Unknown]
  - Dyslipidaemia [Unknown]
  - Blood alkaline phosphatase increased [Unknown]
  - Muscle spasms [Unknown]
  - Homocystinaemia [Unknown]
  - Bone pain [Recovering/Resolving]
  - Pulmonary valve incompetence [Unknown]
  - Inguinal hernia [Unknown]
  - Pulmonary thrombosis [Unknown]
  - Suture related complication [Unknown]
  - Diastolic dysfunction [Unknown]
  - Radiculopathy [Unknown]
  - Arthralgia [Unknown]
  - Leukopenia [Unknown]
  - Gastrointestinal haemorrhage [Unknown]
  - Hypoaesthesia [Unknown]
  - Periodontitis [Unknown]
  - Pain in jaw [Unknown]
  - Hyperlipidaemia [Unknown]
  - Haemorrhoidal haemorrhage [Unknown]
  - Exposed bone in jaw [Unknown]
  - Oral pain [Unknown]
  - Bone lesion [Unknown]
  - Mass [Unknown]
  - Hypocalcaemia [Unknown]
  - Night sweats [Unknown]
  - Headache [Unknown]
  - Fatigue [Not Recovered/Not Resolved]
  - Eye inflammation [Unknown]
  - Dry eye [Unknown]
  - Hot flush [Unknown]
  - Infection [Unknown]
  - Abdominal pain upper [Unknown]
  - Synovial cyst [Unknown]
  - Meningeal disorder [Unknown]
  - Bone neoplasm [Unknown]
  - Anorectal disorder [Unknown]
  - Benign gastrointestinal neoplasm [Unknown]
  - Rectal haemorrhage [Unknown]
  - Musculoskeletal discomfort [Unknown]
  - Osteolysis [Unknown]
  - Neck pain [Recovering/Resolving]
  - Fall [Unknown]
  - Contusion [Unknown]
  - Metastases to spine [Unknown]
  - Neuralgia [Unknown]
  - Musculoskeletal chest pain [Not Recovered/Not Resolved]
  - Pancytopenia [Unknown]
  - Prostate cancer metastatic [Unknown]
  - Malignant neoplasm progression [Unknown]
  - Hypothyroidism [Unknown]
  - Pain [Unknown]
  - Spinal osteoarthritis [Unknown]
  - Spinal fracture [Unknown]
  - Rib fracture [Unknown]
  - Photophobia [Unknown]
  - Visual impairment [Unknown]
  - Metastases to central nervous system [Unknown]
  - Metastases to bone [Unknown]
  - Metastases to muscle [Unknown]
  - Tinnitus [Unknown]
  - Vision blurred [Unknown]
  - Diplopia [Unknown]
  - Acute sinusitis [Unknown]
  - Cerumen impaction [Unknown]
  - Bone marrow failure [Unknown]
  - Cachexia [Unknown]
  - Ecchymosis [Unknown]
  - Atelectasis [Unknown]
  - Pulmonary haematoma [Unknown]
  - Arteriosclerosis coronary artery [Unknown]
  - Kyphosis [Unknown]
  - Dysphonia [Unknown]
  - Dizziness [Unknown]
  - Hearing impaired [Unknown]
  - Epistaxis [Unknown]
  - Gait disturbance [Unknown]
  - Dysphagia [Unknown]
  - Amnesia [Unknown]
  - Haematuria [Unknown]
  - Wound [Unknown]
  - Pulmonary mass [Unknown]
  - Pleural fibrosis [Unknown]
  - Aortic dilatation [Unknown]
